FAERS Safety Report 4768607-X (Version None)
Quarter: 2005Q3

REPORT INFORMATION
  Report Type: 
  Country: None (occurrence: None)
  Receive Date: 20050914
  Receipt Date: 20050908
  Transmission Date: 20060218
  Serious: Yes (Hospitalization)
  Sender: FDA-Public Use
  Company Number: 2005CG01500

PATIENT
  Age: 80 Year
  Sex: Male
  Weight: 60 kg

DRUGS (8)
  1. TENORMIN [Suspect]
     Route: 048
     Dates: start: 20011201, end: 20050812
  2. FLECAINE LP [Suspect]
     Route: 048
     Dates: start: 20020601
  3. FLECAINE LP [Suspect]
     Route: 048
  4. FLECAINE LP [Suspect]
     Route: 048
     Dates: end: 20050822
  5. COVERSYL [Suspect]
     Route: 048
     Dates: end: 20040501
  6. COVERSYL [Suspect]
     Route: 048
     Dates: start: 20040501, end: 20050817
  7. PLAVIX [Suspect]
     Route: 048
     Dates: start: 20020101, end: 20050801
  8. ZOCOR [Suspect]
     Route: 048
     Dates: start: 20020401, end: 20050801

REACTIONS (3)
  - DYSPNOEA [None]
  - LUNG CREPITATION [None]
  - PULMONARY FIBROSIS [None]
